FAERS Safety Report 5243417-8 (Version None)
Quarter: 2007Q1

REPORT INFORMATION
  Report Type: 
  Country: None (occurrence: None)
  Receive Date: 20070214
  Receipt Date: 20070201
  Transmission Date: 20070707
  Serious: Yes (Death)
  Sender: FDA-Public Use
  Company Number: 02100-JPN-07-0067

PATIENT
  Age: 73 Year
  Sex: Female

DRUGS (9)
  1. CILOSTAZOL [Suspect]
     Indication: CEREBRAL INFARCTION
     Dosage: 100 MG ORAL
     Route: 048
     Dates: start: 20041228, end: 20060505
  2. CANDESARTAN CILEXETIL [Concomitant]
  3. MANIDIPINE HYDROCHLORIDE [Concomitant]
  4. ATORVASTATIN CALCIUM [Concomitant]
  5. PREDNISOLONE [Concomitant]
  6. CETIRIZINE HYDROCHLORIDE [Concomitant]
  7. OLOPATADINE HYDROCHLORIDE [Concomitant]
  8. LISPRO (GENETICAL RECOMBINATION) [Concomitant]
  9. TICLOPIDINE HYDROCHLORIDE [Concomitant]

REACTIONS (1)
  - SUDDEN DEATH [None]
